FAERS Safety Report 5034473-0 (Version None)
Quarter: 2006Q2

REPORT INFORMATION
  Report Type: 
  Country: None (occurrence: None)
  Receive Date: 20060626
  Receipt Date: 20060620
  Transmission Date: 20061013
  Serious: Yes (Other)
  Sender: FDA-Public Use
  Company Number: US-AVENTIS-200615340US

PATIENT
  Age: 54 Year
  Sex: Female

DRUGS (4)
  1. LANTUS [Suspect]
     Indication: DIABETES MELLITUS NON-INSULIN-DEPENDENT
     Dosage: DOSE UNIT: UNITS
  2. GLYBURIDE [Concomitant]
     Dosage: DOSE: UNK
  3. METFORMIN [Concomitant]
     Dosage: DOSE: UNK
  4. ANTIHYPERTENSIVES [Concomitant]
     Dosage: DOSE: UNK

REACTIONS (7)
  - COGNITIVE DISORDER [None]
  - DIFFICULTY IN WALKING [None]
  - DISTURBANCE IN ATTENTION [None]
  - KETOSIS [None]
  - MALAISE [None]
  - STRESS [None]
  - VOMITING [None]
